FAERS Safety Report 6370429-3 (Version None)
Quarter: 2009Q3

REPORT INFORMATION
  Report Type: 
  Country: None (occurrence: None)
  Receive Date: 20090923
  Receipt Date: 20090916
  Transmission Date: 20100115
  Serious: Yes (Hospitalization)
  Sender: FDA-Public Use
  Company Number: US-GENENTECH-290712

PATIENT
  Sex: Male

DRUGS (1)
  1. XOLAIR [Suspect]
     Indication: ASTHMA

REACTIONS (2)
  - MYOCARDIAL INFARCTION [None]
  - THROMBOSIS [None]
